FAERS Safety Report 9257005 (Version 4)
Quarter: 2013Q4

REPORT INFORMATION
  Report Type: Spontaneous
  Country: DE (occurrence: None)
  Receive Date: 20130424
  Receipt Date: 20131015
  Transmission Date: 20140711
  Serious: Yes (Hospitalization)
  Sender: FDA-Public Use
  Company Number: 2013DE001470

PATIENT
  Age: 71 Year
  Sex: Male
  Weight: 89 kg

DRUGS (17)
  1. PONATINIB [Suspect]
     Indication: CHRONIC MYELOID LEUKAEMIA
     Route: 048
     Dates: start: 20110310, end: 20130124
  2. ASS (ACELYLSALICYLIC ACID) [Concomitant]
  3. PANTOZOL (PANTOPRAZOLE SODIUM SESQUIHYDRATE) [Concomitant]
  4. L-THYROXIN (LEVOTHYROXINE SODIUM) [Concomitant]
  5. INEGY (EZETIMBE, SIMVASTATIN) [Concomitant]
  6. IBUPROFEN (IBUPROFEN SODIUM) [Concomitant]
  7. MAGNESIUM (MAGNESIUM) [Concomitant]
  8. BIFITERAL (LACTULOSE) [Concomitant]
  9. NITROSPRAY (GLYCERYL TRINITRATE) [Concomitant]
  10. PRASUGREL (PRASUGREL) [Concomitant]
  11. RAMIPRIL (RAMIPRIL) [Concomitant]
  12. ISOSORBID DINITRATE (ISOSORBIDE DINITRATE) [Concomitant]
  13. MOISIDOMIN AL (MOSIDOMINE) [Concomitant]
  14. ALLOPURINOL [Concomitant]
  15. HEPARIN [Concomitant]
  16. RANOLAZINE (RANOLAZINE) [Concomitant]
  17. IVABRADINE (IVABRADINE) [Concomitant]

REACTIONS (23)
  - Femoral artery occlusion [None]
  - Cardio-respiratory arrest [None]
  - Renal failure acute [None]
  - Cerebrovascular accident [None]
  - Acute myocardial infarction [None]
  - Bradycardia [None]
  - Post procedural complication [None]
  - Continuous haemodiafiltration [None]
  - Enterobacter pneumonia [None]
  - Pathogen resistance [None]
  - Haemoglobin decreased [None]
  - Haematocrit decreased [None]
  - White blood cell count decreased [None]
  - Platelet count decreased [None]
  - Overdose [None]
  - Retrograde amnesia [None]
  - Excoriation [None]
  - Pain [None]
  - Raynaud^s phenomenon [None]
  - Mitral valve incompetence [None]
  - Bundle branch block left [None]
  - Mitral valve incompetence [None]
  - Peripheral arterial occlusive disease [None]
